FAERS Safety Report 13735740 (Version 1)
Quarter: 2017Q3

REPORT INFORMATION
  Report Type: Spontaneous
  Country: US (occurrence: US)
  Receive Date: 20170708
  Receipt Date: 20170708
  Transmission Date: 20171127
  Serious: Yes (Disabling)
  Sender: FDA-Public Use
  Company Number: None

PATIENT
  Age: 55 Year
  Sex: Female
  Weight: 87.75 kg

DRUGS (7)
  1. VANCOMYCIN [Suspect]
     Active Substance: VANCOMYCIN
     Indication: INFECTION
     Dosage: INTRAVENOUS (NOT OTHERWISE SPECIFIED)
     Route: 042
     Dates: start: 20150514, end: 20150520
  2. JANUVIA [Concomitant]
     Active Substance: SITAGLIPTIN PHOSPHATE
  3. TESTOSTERONE. [Concomitant]
     Active Substance: TESTOSTERONE
  4. WOUND VAC [Concomitant]
  5. ARMOUR THYROID [Concomitant]
     Active Substance: THYROID, PORCINE
  6. METFORMIN [Concomitant]
     Active Substance: METFORMIN HYDROCHLORIDE
  7. GLUCOMETER [Concomitant]

REACTIONS (1)
  - Leukopenia [None]

NARRATIVE: CASE EVENT DATE: 20150520
